FAERS Safety Report 23687197 (Version 2)
Quarter: 2024Q2

REPORT INFORMATION
  Report Type: Spontaneous
  Country: JP (occurrence: JP)
  Receive Date: 20240329
  Receipt Date: 20240405
  Transmission Date: 20240715
  Serious: Yes (Other)
  Sender: FDA-Public Use
  Company Number: JP-INSMED-2024-01225-JPAA

PATIENT
  Age: 70 Year
  Sex: Female

DRUGS (1)
  1. ARIKAYCE [Suspect]
     Active Substance: AMIKACIN
     Indication: Mycobacterium avium complex infection
     Dosage: UNK, UNK
     Route: 055
     Dates: start: 2023, end: 2023

REACTIONS (2)
  - Mycobacterium avium complex infection [Unknown]
  - Malaise [Unknown]

NARRATIVE: CASE EVENT DATE: 20230101
